FAERS Safety Report 6691412-4 (Version None)
Quarter: 2010Q2

REPORT INFORMATION
  Report Type: 
  Country: None (occurrence: None)
  Receive Date: 20100416
  Receipt Date: 20100407
  Transmission Date: 20101027
  Serious: Yes (Hospitalization)
  Sender: FDA-Public Use
  Company Number: 2010SP018256

PATIENT
  Age: 82 Year
  Sex: Female

DRUGS (12)
  1. MIRTAZAPINE [Suspect]
     Indication: DECREASED APPETITE
     Dosage: 15 MG; HS; PO
     Route: 048
     Dates: start: 20100319, end: 20100322
  2. MIRTAZAPINE [Suspect]
     Indication: DEPRESSION
     Dosage: 15 MG; HS; PO
     Route: 048
     Dates: start: 20100319, end: 20100322
  3. MIRTAZAPINE [Suspect]
     Indication: INSOMNIA
     Dosage: 15 MG; HS; PO
     Route: 048
     Dates: start: 20100319, end: 20100322
  4. LANSOPRAZOLE [Concomitant]
  5. IRSOGLADINE MALEATE [Concomitant]
  6. PAROXETINE HYDROCHLORIDE [Concomitant]
  7. FLUNITRAZEPAM [Concomitant]
  8. MAGNESIUM OXIDE [Concomitant]
  9. SODIUM PICOSULFATE HYDRATE [Concomitant]
  10. SENNOSIDE [Concomitant]
  11. ROHYPNOL [Concomitant]
  12. PAXIL [Concomitant]

REACTIONS (5)
  - CONVULSION [None]
  - DIZZINESS [None]
  - HYPOAESTHESIA [None]
  - IMMOBILE [None]
  - TREMOR [None]
